FAERS Safety Report 13125840 (Version 2)
Quarter: 2017Q1

REPORT INFORMATION
  Report Type: Spontaneous
  Country: US (occurrence: US)
  Receive Date: 20170118
  Receipt Date: 20170201
  Transmission Date: 20170428
  Serious: Yes (Other)
  Sender: FDA-Public Use
  Company Number: US-FSC THERAPEUTICS-2017ECL00007

PATIENT
  Sex: Male

DRUGS (1)
  1. ACIPHEX SPRINKLE [Suspect]
     Active Substance: RABEPRAZOLE SODIUM
     Dosage: UNK, 1X/DAY

REACTIONS (12)
  - Paraesthesia [Unknown]
  - Diarrhoea [Unknown]
  - Asthma [Unknown]
  - Multiple allergies [Unknown]
  - Hypertension [None]
  - Unemployment [Unknown]
  - Influenza like illness [Unknown]
  - Pain [Unknown]
  - Chest pain [Unknown]
  - Abdominal pain upper [Unknown]
  - Dysuria [Unknown]
  - Fatigue [Unknown]
